FAERS Safety Report 23207032 (Version 1)
Quarter: 2023Q4

REPORT INFORMATION
  Report Type: Spontaneous
  Country: CA (occurrence: CA)
  Receive Date: 20231120
  Receipt Date: 20231120
  Transmission Date: 20240109
  Serious: Yes (Hospitalization, Other)
  Sender: FDA-Public Use
  Company Number: CA-TEVA-2023-CA-2948557

PATIENT
  Sex: Female
  Weight: 1 kg

DRUGS (19)
  1. BETAMETHASONE [Suspect]
     Active Substance: BETAMETHASONE\BETAMETHASONE DIPROPIONATE
     Indication: Maternal therapy to enhance foetal lung maturity
     Route: 065
  2. MAGNESIUM [Suspect]
     Active Substance: MAGNESIUM
     Indication: Pericoronitis
     Route: 065
  3. MAGNESIUM [Suspect]
     Active Substance: MAGNESIUM
     Indication: Nervous system disorder prophylaxis
  4. AMPHOTERICIN B [Suspect]
     Active Substance: AMPHOTERICIN B
     Indication: Antifungal prophylaxis
     Route: 065
  5. CEFUROXIME [Suspect]
     Active Substance: CEFUROXIME
     Indication: Febrile neutropenia
     Route: 065
  6. CEFUROXIME [Suspect]
     Active Substance: CEFUROXIME
     Route: 065
  7. CYTARABINE [Suspect]
     Active Substance: CYTARABINE
     Indication: Acute myeloid leukaemia
     Route: 065
  8. CYTARABINE [Suspect]
     Active Substance: CYTARABINE
     Route: 064
  9. CYTARABINE [Suspect]
     Active Substance: CYTARABINE
     Route: 064
  10. DAUNORUBICIN HYDROCHLORIDE [Suspect]
     Active Substance: DAUNORUBICIN HYDROCHLORIDE
     Indication: Product used for unknown indication
     Route: 065
  11. DINOPROSTONE [Suspect]
     Active Substance: DINOPROSTONE
     Indication: Induction of cervix ripening
     Route: 067
  12. FERROUS SULFATE ANHYDROUS [Suspect]
     Active Substance: FERROUS SULFATE ANHYDROUS
     Indication: Supplementation therapy
     Route: 065
  13. MEROPENEM [Suspect]
     Active Substance: MEROPENEM
     Indication: Pericoronitis
     Route: 064
  14. MEROPENEM [Suspect]
     Active Substance: MEROPENEM
     Indication: Febrile neutropenia
     Route: 065
  15. MEROPENEM [Suspect]
     Active Substance: MEROPENEM
     Route: 042
  16. METRONIDAZOLE [Suspect]
     Active Substance: METRONIDAZOLE
     Indication: Pericoronitis
     Route: 065
  17. METRONIDAZOLE [Suspect]
     Active Substance: METRONIDAZOLE
     Indication: Febrile neutropenia
     Route: 065
  18. OXYTOCIN [Suspect]
     Active Substance: OXYTOCIN
     Indication: Labour induction
     Route: 065
  19. OXYTOCIN [Suspect]
     Active Substance: OXYTOCIN
     Route: 065

REACTIONS (9)
  - Foetal anaemia [Recovered/Resolved]
  - Intermittent positive pressure breathing [Recovered/Resolved]
  - Periventricular leukomalacia [Recovered/Resolved]
  - Positive airway pressure therapy [Recovered/Resolved]
  - White matter lesion [Recovered/Resolved]
  - Haemoglobin decreased [Recovered/Resolved]
  - Premature baby [Recovered/Resolved]
  - Foetal exposure during pregnancy [Recovered/Resolved]
  - Off label use [Recovered/Resolved]
